FAERS Safety Report 6653868-2 (Version None)
Quarter: 2010Q1

REPORT INFORMATION
  Report Type: 
  Country: None (occurrence: None)
  Receive Date: 20100316
  Receipt Date: 20100301
  Transmission Date: 20100710
  Serious: Yes (Hospitalization)
  Sender: FDA-Public Use
  Company Number: GAM-048-10-DE

PATIENT
  Age: 81 Year
  Sex: Female

DRUGS (8)
  1. OCTAGAM [Suspect]
     Indication: SECONDARY IMMUNODEFICIENCY
     Dosage: 15 G IV
     Route: 042
     Dates: start: 20080814, end: 20080814
  2. HUMAN RED BLOOD CELLS [Concomitant]
  3. ERYPO (EPOETIN ALFA) [Concomitant]
  4. DIPYRONE TAB [Concomitant]
  5. POTASSIUM CHLORIDE [Concomitant]
  6. IBANDRONATE SODIUM [Concomitant]
  7. ISOKET RETARD    (ISOSORBIDE DINITRATE [Concomitant]
  8. IMMUNE GLOBULIN (HUMAN) [Suspect]

REACTIONS (4)
  - CHILLS [None]
  - DYSPNOEA [None]
  - GENERAL PHYSICAL HEALTH DETERIORATION [None]
  - PNEUMONIA [None]
